FAERS Safety Report 17047258 (Version 1)
Quarter: 2019Q4

REPORT INFORMATION
  Report Type: Spontaneous
  Country: US (occurrence: US)
  Receive Date: 20191119
  Receipt Date: 20191119
  Transmission Date: 20200122
  Serious: Yes (Life-Threatening)
  Sender: FDA-Public Use
  Company Number: US-NOVOPROD-696034

PATIENT
  Sex: Male

DRUGS (1)
  1. NOVOLOG [Suspect]
     Active Substance: INSULIN ASPART
     Indication: PRODUCT USED FOR UNKNOWN INDICATION
     Dosage: UNK
     Route: 058

REACTIONS (5)
  - Hypophagia [Unknown]
  - Subcutaneous drug absorption impaired [Unknown]
  - Injection site reaction [Unknown]
  - Malignant neoplasm progression [Unknown]
  - Blood glucose increased [Unknown]
